FAERS Safety Report 6599877-3 (Version None)
Quarter: 2010Q1

REPORT INFORMATION
  Report Type: 
  Country: None (occurrence: None)
  Receive Date: 20100216
  Receipt Date: 20100207
  Transmission Date: 20100710
  Serious: Yes (Other)
  Sender: FDA-Public Use
  Company Number: FKO201000023

PATIENT
  Age: 82 Year
  Sex: Male

DRUGS (6)
  1. OXALIPLATIN [Suspect]
     Indication: COLON CANCER
     Dosage: (85 MG/M2)
  2. OXALIPLATIN [Suspect]
     Indication: METASTASES TO LIVER
     Dosage: (85 MG/M2)
  3. FLUOROURACIL [Suspect]
     Indication: COLON CANCER
     Dosage: (400 MG/M2) INTRAVENOUS BOLUS; (600 MG/M2, REPEATED ON ON TWO CONSECUTIVE DAYS.) INTRAVENOUS
  4. FLUOROURACIL [Suspect]
     Indication: METASTASES TO LIVER
     Dosage: (400 MG/M2) INTRAVENOUS BOLUS; (600 MG/M2, REPEATED ON ON TWO CONSECUTIVE DAYS.) INTRAVENOUS
  5. LEUCOVORIN CALCIUM (MANUFACTURER UNKNOWN) (LEUCOVORIN CALCIUM) (LEUCOV [Suspect]
     Indication: COLON CANCER
     Dosage: (100 MG/M2
  6. LEUCOVORIN CALCIUM (MANUFACTURER UNKNOWN) (LEUCOVORIN CALCIUM) (LEUCOV [Suspect]
     Indication: METASTASES TO LIVER
     Dosage: (100 MG/M2

REACTIONS (3)
  - INTERSTITIAL LUNG DISEASE [None]
  - PCO2 DECREASED [None]
  - PO2 DECREASED [None]
